FAERS Safety Report 4456072-1 (Version None)
Quarter: 2004Q3

REPORT INFORMATION
  Report Type: 
  Country: None (occurrence: None)
  Receive Date: 20040920
  Receipt Date: 20040913
  Transmission Date: 20050211
  Serious: Yes (Death)
  Sender: FDA-Public Use
  Company Number: US-JNJFOC-20040903690

PATIENT
  Age: 35 Year
  Sex: Female

DRUGS (3)
  1. EXTRA STRENGTH TYLENOL [Suspect]
     Indication: INTENTIONAL MISUSE
     Dosage: ORAL
     Route: 048
  2. ETHANOL (ETHANOL) [Suspect]
     Indication: INTENTIONAL MISUSE
     Dosage: ORAL
     Route: 048
  3. CODEINE/GUAIFENESIN (CHERACOL; USA) [Suspect]
     Indication: INTENTIONAL MISUSE
     Dosage: ORAL

REACTIONS (3)
  - COMA [None]
  - DRUG TOXICITY [None]
  - INTENTIONAL MISUSE [None]
